FAERS Safety Report 6616003-2 (Version None)
Quarter: 2010Q1

REPORT INFORMATION
  Report Type: 
  Country: None (occurrence: None)
  Receive Date: 20100305
  Receipt Date: 20100301
  Transmission Date: 20100710
  Serious: Yes (Hospitalization)
  Sender: FDA-Public Use
  Company Number: A0848439A

PATIENT
  Age: 53 Year
  Sex: Female
  Weight: 76.4 kg

DRUGS (1)
  1. AVANDIA [Suspect]
     Route: 048

REACTIONS (4)
  - CEREBROVASCULAR ACCIDENT [None]
  - HEMIPARESIS [None]
  - MYOCARDIAL INFARCTION [None]
  - RENAL DISORDER [None]
